FAERS Safety Report 25379872 (Version 1)
Quarter: 2025Q2

REPORT INFORMATION
  Report Type: Spontaneous
  Country: US (occurrence: US)
  Receive Date: 20250530
  Receipt Date: 20250530
  Transmission Date: 20250716
  Serious: Yes (Hospitalization, Other)
  Sender: ABBVIE
  Company Number: US-ABBVIE-6304628

PATIENT
  Age: 63 Year
  Sex: Female
  Weight: 74.842 kg

DRUGS (26)
  1. HUMIRA [Suspect]
     Active Substance: ADALIMUMAB
     Indication: Psoriasis
     Route: 058
     Dates: start: 2020, end: 2023
  2. HUMIRA [Suspect]
     Active Substance: ADALIMUMAB
     Indication: Psoriatic arthropathy
  3. VARENICLINE [Concomitant]
     Active Substance: VARENICLINE
     Indication: Smoking cessation therapy
  4. MONTELUKAST [Concomitant]
     Active Substance: MONTELUKAST
     Indication: Respiratory tract congestion
  5. ESTRADIOL [Concomitant]
     Active Substance: ESTRADIOL
     Indication: Vulvovaginal dryness
  6. OXYCODONE [Concomitant]
     Active Substance: OXYCODONE
     Indication: Pain
  7. VASCEPA [Concomitant]
     Active Substance: ICOSAPENT ETHYL
     Indication: Blood triglycerides increased
  8. PANTOPRAZOLE [Concomitant]
     Active Substance: PANTOPRAZOLE
     Indication: Gastrooesophageal reflux disease
  9. ASPIRIN [Concomitant]
     Active Substance: ASPIRIN
     Indication: Cardiac disorder
  10. FLUTICASONE [Concomitant]
     Active Substance: FLUTICASONE
     Indication: Asthma
  11. SKYRIZI [Concomitant]
     Active Substance: RISANKIZUMAB-RZAA
     Indication: Arthritis
  12. PROMETHAZINE [Concomitant]
     Active Substance: PROMETHAZINE HYDROCHLORIDE
     Indication: Nausea
  13. FLUTICASONE [Concomitant]
     Active Substance: FLUTICASONE
     Indication: Asthma
  14. DIAZEPAM [Concomitant]
     Active Substance: DIAZEPAM
     Indication: Bladder spasm
  15. AMITRIPTYLINE [Concomitant]
     Active Substance: AMITRIPTYLINE
     Indication: Migraine
  16. KLOR-CON [Concomitant]
     Active Substance: POTASSIUM CHLORIDE
     Indication: Blood potassium
  17. ESZOPICLONE [Concomitant]
     Active Substance: ESZOPICLONE
     Indication: Sleep disorder
  18. ACYCLOVIR [Concomitant]
     Active Substance: ACYCLOVIR
     Indication: Herpes virus infection
  19. GABAPENTIN [Concomitant]
     Active Substance: GABAPENTIN
     Indication: Procedural pain
  20. LOSARTAN AND HYDROCHLOROTHIAZIDE [Concomitant]
     Active Substance: HYDROCHLOROTHIAZIDE\LOSARTAN POTASSIUM
     Indication: Hypertension
  21. PIMECROLIMUS [Concomitant]
     Active Substance: PIMECROLIMUS
     Indication: Pain of skin
  22. TIZANIDINE [Concomitant]
     Active Substance: TIZANIDINE
     Indication: Spinal disorder
  23. ALBUTEROL SULFATE [Concomitant]
     Active Substance: ALBUTEROL SULFATE
     Indication: Asthma
  24. ROSUVASTATIN CALCIUM [Concomitant]
     Active Substance: ROSUVASTATIN CALCIUM
     Indication: Blood cholesterol abnormal
  25. MORPHINE [Concomitant]
     Active Substance: MORPHINE
     Indication: Pain
  26. VALACYCLOVIR [Concomitant]
     Active Substance: VALACYCLOVIR HYDROCHLORIDE
     Indication: Oral herpes

REACTIONS (12)
  - Gastrointestinal injury [Unknown]
  - Supraventricular tachycardia [Recovered/Resolved]
  - Oral herpes [Recovered/Resolved]
  - Weight decreased [Unknown]
  - Norovirus infection [Recovered/Resolved]
  - Cardiac failure congestive [Recovering/Resolving]
  - Pneumonia [Recovered/Resolved]
  - Feeding disorder [Recovered/Resolved]
  - Joint swelling [Recovered/Resolved]
  - Stomatitis [Recovered/Resolved]
  - Urinary tract infection [Recovered/Resolved]
  - Gastric haemorrhage [Recovered/Resolved]

NARRATIVE: CASE EVENT DATE: 20200101
